FAERS Safety Report 5856952-6 (Version None)
Quarter: 2008Q3

REPORT INFORMATION
  Report Type: 
  Country: None (occurrence: None)
  Receive Date: 20080825
  Receipt Date: 20080812
  Transmission Date: 20090109
  Serious: Yes (Hospitalization)
  Sender: FDA-Public Use
  Company Number: FR-ROCHE-580857

PATIENT
  Sex: Female

DRUGS (7)
  1. VALGANCICLOVIR HCL [Suspect]
     Indication: DRUG USE FOR UNKNOWN INDICATION
     Route: 048
     Dates: end: 20080418
  2. BACTRIM [Concomitant]
     Route: 048
     Dates: start: 20080328, end: 20080529
  3. CELLCEPT [Concomitant]
     Route: 048
     Dates: start: 20080320
  4. CELLCEPT [Concomitant]
     Dosage: DOSAGE DECREASED
     Route: 048
  5. CELLCEPT [Concomitant]
     Dosage: DOSAGE INCREASED
     Route: 048
  6. MOPRAL [Concomitant]
     Route: 048
     Dates: start: 20080320
  7. ZELITREX [Concomitant]
     Dosage: DOSAGE REGIMEN: 4500  MG Q
     Route: 048
     Dates: start: 20080418

REACTIONS (2)
  - DEAFNESS [None]
  - NEUTROPENIA [None]
